FAERS Safety Report 9459401 (Version 1)
Quarter: 2013Q3

REPORT INFORMATION
  Report Type: Spontaneous
  Country: PH (occurrence: PH)
  Receive Date: 20130815
  Receipt Date: 20130815
  Transmission Date: 20140515
  Serious: Yes (Death)
  Sender: FDA-Public Use
  Company Number: PH-009507513-1308PHL005875

PATIENT
  Sex: Female

DRUGS (1)
  1. JANUMET [Suspect]
     Dosage: 1 DF, QD
     Route: 048
     Dates: end: 201307

REACTIONS (3)
  - Adverse event [Fatal]
  - Renal injury [Fatal]
  - Inappropriate schedule of drug administration [Unknown]
